FAERS Safety Report 5741024-1 (Version None)
Quarter: 2008Q2

REPORT INFORMATION
  Report Type: 
  Country: None (occurrence: None)
  Receive Date: 20080516
  Receipt Date: 20080505
  Transmission Date: 20081010
  Serious: Yes (Other)
  Sender: FDA-Public Use
  Company Number: US-PFIZER INC-2008039015

PATIENT
  Sex: Female
  Weight: 74.4 kg

DRUGS (20)
  1. EXUBERA [Suspect]
     Indication: DIABETES MELLITUS INADEQUATE CONTROL
     Route: 055
  2. GLUCOPHAGE [Concomitant]
  3. GLUCOTROL [Concomitant]
  4. LEVOTHYROXINE SODIUM [Concomitant]
  5. LAMICTAL [Concomitant]
  6. FEC [Concomitant]
  7. PREMARIN [Concomitant]
  8. VYTORIN [Concomitant]
  9. KLOR-CON [Concomitant]
  10. CHLORPHENIRAMINE MALEATE AND PSEUDOEPHEDRINE HCL [Concomitant]
  11. MULTI-VITAMINS [Concomitant]
  12. CITALOPRAM HYDROBROMIDE [Concomitant]
  13. ISOSORBIDE DINITRATE [Concomitant]
  14. LIPITOR [Concomitant]
  15. ALLEGRA [Concomitant]
  16. CLONAZEPAM [Concomitant]
  17. SYNTHROID [Concomitant]
  18. PLAVIX [Concomitant]
  19. MICARDIS [Concomitant]
  20. OMACOR [Concomitant]

REACTIONS (2)
  - GLYCOSYLATED HAEMOGLOBIN INCREASED [None]
  - MEDICATION ERROR [None]
